FAERS Safety Report 6768811-5 (Version None)
Quarter: 2010Q2

REPORT INFORMATION
  Report Type: 
  Country: None (occurrence: None)
  Receive Date: 20100611
  Receipt Date: 20100601
  Transmission Date: 20101027
  Serious: Yes (Hospitalization, Other)
  Sender: FDA-Public Use
  Company Number: 20108885

PATIENT
  Sex: Male

DRUGS (1)
  1. LIORESAL [Suspect]
     Indication: MUSCLE SPASTICITY
     Dosage: 926 MCG, DAILY, INTRATHECAL
     Route: 037

REACTIONS (7)
  - DEVICE MALFUNCTION [None]
  - DEVICE OCCLUSION [None]
  - HYPERTONIA [None]
  - IMPLANT SITE CALCIFICATION [None]
  - IMPLANT SITE SCAR [None]
  - PRURITUS [None]
  - WITHDRAWAL SYNDROME [None]
